FAERS Safety Report 9502994 (Version 2)
Quarter: 2013Q3

REPORT INFORMATION
  Report Type: Spontaneous
  Country: US (occurrence: US)
  Receive Date: 20130906
  Receipt Date: 20130924
  Transmission Date: 20140515
  Serious: No
  Sender: FDA-Public Use
  Company Number: US-009507513-1309USA002447

PATIENT
  Age: 65 Year
  Sex: Male

DRUGS (3)
  1. SAPHRIS [Suspect]
     Dosage: 5 MG, HS
     Route: 060
     Dates: end: 20130903
  2. SAPHRIS [Interacting]
     Dosage: UNK
     Dates: start: 20130905
  3. LEVAQUIN [Interacting]
     Indication: PNEUMONIA
     Dosage: UNK
     Dates: start: 20130903, end: 20130905

REACTIONS (5)
  - Insomnia [Recovered/Resolved]
  - Anxiety [Recovered/Resolved]
  - Pneumonia [Unknown]
  - Drug interaction [Unknown]
  - Electrocardiogram QT prolonged [Unknown]
